FAERS Safety Report 26217830 (Version 1)
Quarter: 2025Q4

REPORT INFORMATION
  Report Type: Report from Study
  Country: US (occurrence: US)
  Receive Date: 20251231
  Receipt Date: 20251231
  Transmission Date: 20260118
  Serious: Yes (Hospitalization)
  Sender: ALEXION PHARMACEUTICALS
  Company Number: US-ASTRAZENECA-202512NAM024370US

PATIENT
  Sex: Female

DRUGS (2)
  1. OLAPARIB [Suspect]
     Active Substance: OLAPARIB
     Indication: Ovarian cancer
     Dosage: 200 MILLIGRAM, BID
     Route: 061
     Dates: start: 20200403
  2. OLAPARIB [Suspect]
     Active Substance: OLAPARIB
     Dosage: 100 MILLIGRAM, BID
     Route: 061
     Dates: start: 20120925

REACTIONS (5)
  - Arthritis infective [Unknown]
  - Nausea [Recovered/Resolved]
  - Hot flush [Unknown]
  - Memory impairment [Unknown]
  - Off label use [Unknown]
